FAERS Safety Report 15368142 (Version 3)
Quarter: 2019Q2

REPORT INFORMATION
  Report Type: Spontaneous
  Country: JP (occurrence: JP)
  Receive Date: 20180910
  Receipt Date: 20190612
  Transmission Date: 20190711
  Serious: Yes (Other)
  Sender: FDA-Public Use
  Company Number: JP-SHIRE-JP201834413AA

PATIENT
  Age: 14 Year
  Sex: Male
  Weight: 40 kg

DRUGS (10)
  1. FEIBA NF [Suspect]
     Active Substance: ANTI-INHIBITOR COAGULANT COMPLEX
     Indication: MUSCLE HAEMORRHAGE
     Dosage: 1000 INTERNATIONAL UNIT, UNKNOWN
     Route: 042
     Dates: start: 201805
  2. NOVACT-M [Concomitant]
     Active Substance: FACTOR IX COMPLEX
     Dosage: UNK
     Route: 065
  3. PREDNISOLONE. [Concomitant]
     Active Substance: PREDNISOLONE
     Indication: FACTOR IX INHIBITION
     Dosage: 0.6 MILLIGRAM/KILOGRAM, UNKNOWN
     Route: 048
  4. FEIBA NF [Suspect]
     Active Substance: ANTI-INHIBITOR COAGULANT COMPLEX
     Indication: HAEMORRHAGE PROPHYLAXIS
     Dosage: UNK, AS REQ^D
     Route: 042
  5. NOVACT-M [Concomitant]
     Active Substance: FACTOR IX COMPLEX
     Indication: FACTOR IX DEFICIENCY
     Dosage: 67 INTERNATIONAL UNIT/KILOGRAM, QOD
     Route: 065
  6. NOVACT-M [Concomitant]
     Active Substance: FACTOR IX COMPLEX
     Dosage: 80 INTERNATIONAL UNIT/KILOGRAM, 1X/DAY:QD
     Route: 065
  7. NOVOSEVEN [Concomitant]
     Active Substance: COAGULATION FACTOR VIIA RECOMBINANT HUMAN
     Indication: HAEMORRHAGE
     Route: 065
  8. NOVACT-M [Concomitant]
     Active Substance: FACTOR IX COMPLEX
     Indication: IMMUNE TOLERANCE INDUCTION
     Dosage: UNK
     Route: 065
  9. FEIBA NF [Suspect]
     Active Substance: ANTI-INHIBITOR COAGULANT COMPLEX
     Indication: HAEMORRHAGE SUBCUTANEOUS
  10. FEIBA NF [Suspect]
     Active Substance: ANTI-INHIBITOR COAGULANT COMPLEX
     Indication: HAEMATOMA

REACTIONS (1)
  - Nephrotic syndrome [Recovering/Resolving]
